FAERS Safety Report 23300868 (Version 1)
Quarter: 2023Q4

REPORT INFORMATION
  Report Type: Spontaneous
  Country: US (occurrence: US)
  Receive Date: 20231215
  Receipt Date: 20231215
  Transmission Date: 20240110
  Serious: Yes (Other)
  Sender: FDA-Public Use
  Company Number: US-AUROBINDO-AUR-APL-2023-078222

PATIENT
  Age: 57 Year
  Sex: Male

DRUGS (2)
  1. DEXAMETHASONE [Suspect]
     Active Substance: DEXAMETHASONE
     Indication: Adenocarcinoma of colon
     Dosage: THREE DOSES OF 4MG
     Route: 065
  2. CARBOPLATIN;ETOPOSIDE [Concomitant]
     Indication: Adenocarcinoma of colon
     Dosage: THREE DOSES OF 4MG
     Route: 065

REACTIONS (1)
  - Cushing^s syndrome [Unknown]
